FAERS Safety Report 19299167 (Version 1)
Quarter: 2021Q2

REPORT INFORMATION
  Report Type: Spontaneous
  Country: US (occurrence: US)
  Receive Date: 20210524
  Receipt Date: 20210524
  Transmission Date: 20210717
  Serious: Yes (Hospitalization)
  Sender: FDA-Public Use
  Company Number: None

PATIENT
  Age: 70 Year
  Sex: Male
  Weight: 61 kg

DRUGS (4)
  1. LEVETIRACETAM (KEPPRA) 500 MG TABLET [Concomitant]
     Dates: start: 20210112, end: 20210213
  2. PIPERACILLIN?TAZOBACTAM (ZOSYN) 3.375 GRAM/50 ML DEXTROSE IVPB [Concomitant]
     Dates: start: 20210114, end: 20210121
  3. ACYCLOVIR (ZOVIRAX) 800 MG TABLET [Concomitant]
     Dates: start: 20210112, end: 20210524
  4. TECARTUS [Suspect]
     Active Substance: BREXUCABTAGENE AUTOLEUCEL
     Indication: MANTLE CELL LYMPHOMA
     Dosage: ?          OTHER FREQUENCY:ONCE;?
     Route: 040
     Dates: start: 20210113, end: 20210113

REACTIONS (2)
  - Cytokine release syndrome [None]
  - Neurotoxicity [None]

NARRATIVE: CASE EVENT DATE: 20210113
